FAERS Safety Report 25226772 (Version 3)
Quarter: 2025Q2

REPORT INFORMATION
  Report Type: Spontaneous
  Country: PT (occurrence: PT)
  Receive Date: 20250422
  Receipt Date: 20250626
  Transmission Date: 20250717
  Serious: Yes (Death, Congenital Anomaly)
  Sender: NOVARTIS
  Company Number: PT-002147023-NVSC2025PT065483

PATIENT

DRUGS (1)
  1. KESIMPTA [Suspect]
     Active Substance: OFATUMUMAB
     Indication: Foetal exposure during pregnancy
     Route: 064
     Dates: start: 2023, end: 20250121

REACTIONS (3)
  - Multiple congenital abnormalities [Fatal]
  - Autosomal chromosome anomaly [Fatal]
  - Foetal exposure during pregnancy [Unknown]

NARRATIVE: CASE EVENT DATE: 20250411
